FAERS Safety Report 25416176 (Version 1)
Quarter: 2025Q2

REPORT INFORMATION
  Report Type: Spontaneous
  Country: ES (occurrence: ES)
  Receive Date: 20250610
  Receipt Date: 20250610
  Transmission Date: 20250716
  Serious: Yes (Hospitalization)
  Sender: CHEPLAPHARM
  Company Number: ES-CHEPLA-2025007016

PATIENT
  Age: 79 Year
  Sex: Male

DRUGS (10)
  1. CARVEDILOL [Suspect]
     Active Substance: CARVEDILOL
     Dosage: DAILY DOSE: 2.5 MILLIGRAM
  2. PREDNISONE [Suspect]
     Active Substance: PREDNISONE
     Indication: Tubulointerstitial nephritis
     Dosage: DAILY DOSE: 1 MILLIGRAM/KG
     Route: 048
  3. HYDROXYUREA [Suspect]
     Active Substance: HYDROXYUREA
     Indication: Essential thrombocythaemia
     Dosage: DAILY DOSE: 500 MILLIGRAM
  4. ANAGRELIDE [Suspect]
     Active Substance: ANAGRELIDE
     Indication: Essential thrombocythaemia
     Dosage: STARTED MORE THAN A DECADE AGO?DAILY DOSE: 1 MILLIGRAM
  5. ACENOCOUMAROL [Suspect]
     Active Substance: ACENOCOUMAROL
     Indication: Atrial fibrillation
  6. FUROSEMIDE [Suspect]
     Active Substance: FUROSEMIDE
     Indication: Diuretic therapy
     Dosage: DAILY DOSE: 40 MILLIGRAM
  7. FUROSEMIDE [Suspect]
     Active Substance: FUROSEMIDE
     Indication: Diuretic therapy
     Dosage: DAILY DOSE: 375 MILLIGRAM
     Route: 042
  8. DARBEPOETIN ALFA [Suspect]
     Active Substance: DARBEPOETIN ALFA
     Indication: Anaemia
  9. IRON [Suspect]
     Active Substance: IRON
     Route: 048
  10. METHYLPREDNISOLONE [Concomitant]
     Active Substance: METHYLPREDNISOLONE
     Indication: Tubulointerstitial nephritis
     Route: 042

REACTIONS (3)
  - Acute kidney injury [Unknown]
  - Renal tubular necrosis [Unknown]
  - Off label use [Unknown]
